FAERS Safety Report 23600919 (Version 1)
Quarter: 2024Q1

REPORT INFORMATION
  Report Type: Spontaneous
  Country: US (occurrence: None)
  Receive Date: 20240305
  Receipt Date: 20240305
  Transmission Date: 20240410
  Serious: Yes (Hospitalization)
  Sender: FDA-Public Use
  Company Number: None

PATIENT
  Age: 75 Year
  Sex: Male
  Weight: 94.3 kg

DRUGS (1)
  1. TALQUETAMAB [Suspect]
     Active Substance: TALQUETAMAB
     Indication: Plasma cell myeloma
     Dosage: 36 MG ONCE SUBCUTANEOUS ?
     Route: 058
     Dates: start: 20240222, end: 20240304

REACTIONS (1)
  - Immune effector cell-associated HLH-like syndrome [None]

NARRATIVE: CASE EVENT DATE: 20240301
